FAERS Safety Report 23472239 (Version 7)
Quarter: 2024Q3

REPORT INFORMATION
  Report Type: Report from Study
  Country: CA (occurrence: CA)
  Receive Date: 20240202
  Receipt Date: 20240816
  Transmission Date: 20241016
  Serious: Yes (Hospitalization, Other)
  Sender: BAUSCH AND LOMB
  Company Number: CA-BAUSCH-BL-2021-021735

PATIENT
  Age: 50 Year
  Sex: Female

DRUGS (8)
  1. SILIQ [Suspect]
     Active Substance: BRODALUMAB
     Indication: Psoriasis
     Dosage: 210MG/ 1.5 ML, WEEKLY (WEEK 0-2)
     Route: 058
     Dates: start: 20210608, end: 202106
  2. SILIQ [Suspect]
     Active Substance: BRODALUMAB
     Dosage: 210MG/ 1.5 ML, Q2 WEEKS
     Route: 058
     Dates: start: 202107, end: 202401
  3. SILIQ [Suspect]
     Active Substance: BRODALUMAB
     Dosage: 210MG/ 1.5 ML, Q2 WEEKS
     Route: 058
     Dates: start: 20240312
  4. ALITRETINOIN [Suspect]
     Active Substance: ALITRETINOIN
     Indication: Psoriasis
     Route: 065
  5. VITAMIN B12 [Concomitant]
     Active Substance: CYANOCOBALAMIN
     Indication: Product used for unknown indication
     Route: 048
  6. CALCIUM [Concomitant]
     Active Substance: CALCIUM
     Indication: Product used for unknown indication
     Dosage: CA++
  7. VITAMIN D [Concomitant]
     Active Substance: VITAMIN D NOS
     Indication: Product used for unknown indication
     Route: 048
  8. IBUPROFEN [Concomitant]
     Active Substance: IBUPROFEN
     Indication: Headache
     Dosage: AS REQUIRED

REACTIONS (30)
  - Ear haemorrhage [Unknown]
  - Swelling [Not Recovered/Not Resolved]
  - Myocardial infarction [Unknown]
  - Skin infection [Not Recovered/Not Resolved]
  - Osteomyelitis [Not Recovered/Not Resolved]
  - Injection site bruising [Unknown]
  - Abdominal pain upper [Unknown]
  - Skin odour abnormal [Unknown]
  - Initial insomnia [Unknown]
  - Somnolence [Unknown]
  - Muscle twitching [Unknown]
  - Lacrimation increased [Recovering/Resolving]
  - Swelling face [Not Recovered/Not Resolved]
  - Drug hypersensitivity [Unknown]
  - Pain [Recovered/Resolved]
  - Facial pain [Recovering/Resolving]
  - Pain in jaw [Recovering/Resolving]
  - Psoriasis [Recovering/Resolving]
  - Hypoacusis [Not Recovered/Not Resolved]
  - Dizziness [Not Recovered/Not Resolved]
  - Vertigo [Not Recovered/Not Resolved]
  - Asthenia [Not Recovered/Not Resolved]
  - Lymphadenopathy [Not Recovered/Not Resolved]
  - Skin reaction [Not Recovered/Not Resolved]
  - Injection site mass [Unknown]
  - Ear infection [Not Recovered/Not Resolved]
  - Localised infection [Recovered/Resolved]
  - Sinusitis [Recovered/Resolved]
  - Fatigue [Not Recovered/Not Resolved]
  - Diarrhoea [Unknown]

NARRATIVE: CASE EVENT DATE: 20210601
